FAERS Safety Report 23302249 (Version 2)
Quarter: 2024Q2

REPORT INFORMATION
  Report Type: Spontaneous
  Country: AR (occurrence: AR)
  Receive Date: 20231215
  Receipt Date: 20240402
  Transmission Date: 20240716
  Serious: Yes (Other)
  Sender: FDA-Public Use
  Company Number: AR-GLAXOSMITHKLINE-AR2023AMR085666

PATIENT

DRUGS (2)
  1. ZEJULA [Suspect]
     Active Substance: NIRAPARIB
     Indication: Product used for unknown indication
     Dosage: UNK
  2. ZEJULA [Suspect]
     Active Substance: NIRAPARIB
     Indication: Product used for unknown indication
     Dosage: UNK
     Dates: start: 20240327

REACTIONS (15)
  - Lung neoplasm malignant [Unknown]
  - Omentectomy [Unknown]
  - Computerised tomogram abnormal [Unknown]
  - Tumour marker increased [Unknown]
  - Neoplasm [Unknown]
  - Abdominal discomfort [Unknown]
  - Feeling abnormal [Unknown]
  - Bedridden [Unknown]
  - Illness [Unknown]
  - Generalised oedema [Unknown]
  - Paraesthesia [Unknown]
  - Mass [Unknown]
  - Fluid retention [Unknown]
  - Vein disorder [Unknown]
  - Drug ineffective [Unknown]
